FAERS Safety Report 23452905 (Version 1)
Quarter: 2024Q1

REPORT INFORMATION
  Report Type: Spontaneous
  Country: DE (occurrence: DE)
  Receive Date: 20240129
  Receipt Date: 20240129
  Transmission Date: 20240410
  Serious: Yes (Other)
  Sender: FDA-Public Use
  Company Number: DE-ROCHE-3331876

PATIENT
  Sex: Male

DRUGS (13)
  1. BENDAMUSTINE [Suspect]
     Active Substance: BENDAMUSTINE
     Indication: Diffuse large B-cell lymphoma
     Dosage: UNK (FOURTH LINE TREATMENT, R-POLA-BENDAMUSTINE (FIRST CYCLE WITHOUT BENDAMUSTINE BECAUSE OF LEUKAPH
     Route: 065
     Dates: start: 20221223, end: 20230111
  2. CYCLOPHOSPHAMIDE\DOXORUBICIN\ETOPOSIDE\PREDNISONE\VINCRISTINE [Suspect]
     Active Substance: CYCLOPHOSPHAMIDE\DOXORUBICIN\ETOPOSIDE\PREDNISONE\VINCRISTINE
     Indication: Diffuse large B-cell lymphoma
     Dosage: UNK (FIRST LINE TREATMENT, R-CHOEP (2 CYCLE))
     Route: 065
     Dates: start: 20220401, end: 20220601
  3. CYCLOPHOSPHAMIDE\DOXORUBICIN [Suspect]
     Active Substance: CYCLOPHOSPHAMIDE\DOXORUBICIN
     Indication: Diffuse large B-cell lymphoma
     Dosage: UNK (SECOND LINE TREATMENT, R-POLA-CHEP)
     Route: 065
     Dates: start: 20220601, end: 20221001
  4. CISPLATIN\CYTARABINE\DEXAMETHASONE [Suspect]
     Active Substance: CISPLATIN\CYTARABINE\DEXAMETHASONE
     Indication: Diffuse large B-cell lymphoma
     Dosage: UNK (THIRD LINE TREATMENT, R-DHAP)
     Route: 065
     Dates: start: 20221122, end: 20221219
  5. ETOPOSIDE [Suspect]
     Active Substance: ETOPOSIDE
     Indication: Diffuse large B-cell lymphoma
     Dosage: UNK (SECOND LINE TREATMENT, R-POLA-CHEP)
     Route: 065
     Dates: start: 20220601, end: 20221001
  6. MABTHERA [Suspect]
     Active Substance: RITUXIMAB
     Indication: Diffuse large B-cell lymphoma
     Dosage: UNK (FIRST LINE TREATMENT, R-CHOEP (2 CYCLE))
     Route: 065
     Dates: start: 20220401, end: 20220601
  7. MABTHERA [Suspect]
     Active Substance: RITUXIMAB
     Dosage: UNK (FOURTH LINE TREATMENT, R-POLA-BENDAMUSTINE (FIRST CYCLE WITHOUT BENDAMUSTINE BECAUSE OF LEUKAPH
     Route: 065
     Dates: start: 20221223, end: 20230111
  8. MABTHERA [Suspect]
     Active Substance: RITUXIMAB
     Dosage: UNK (SECOND LINE TREATMENT, R-POLA-CHEP)
     Route: 065
     Dates: start: 20220601, end: 20221001
  9. MABTHERA [Suspect]
     Active Substance: RITUXIMAB
     Dosage: UNK (THIRD LINE TREATMENT, R-DHAP)
     Route: 065
     Dates: start: 20221122, end: 20221219
  10. PREDNISONE [Suspect]
     Active Substance: PREDNISONE
     Indication: Product used for unknown indication
     Dosage: UNK (SECOND LINE TREATMENT, R-POLA-CHEP)
     Route: 065
     Dates: start: 20220601, end: 20221001
  11. POLIVY [Suspect]
     Active Substance: POLATUZUMAB VEDOTIN-PIIQ
     Indication: Product used for unknown indication
     Route: 065
  12. POLIVY [Suspect]
     Active Substance: POLATUZUMAB VEDOTIN-PIIQ
     Indication: Product used for unknown indication
     Route: 065
  13. METHOTREXATE [Concomitant]
     Active Substance: METHOTREXATE
     Indication: Diffuse large B-cell lymphoma
     Dosage: UNK, HIGH-DOSE
     Route: 065
     Dates: start: 2022, end: 2022

REACTIONS (2)
  - Lymphoma [Not Recovered/Not Resolved]
  - Off label use [Unknown]
